FAERS Safety Report 23931617 (Version 3)
Quarter: 2025Q3

REPORT INFORMATION
  Report Type: Spontaneous
  Country: US (occurrence: US)
  Receive Date: 20240603
  Receipt Date: 20250826
  Transmission Date: 20251021
  Serious: Yes (Other)
  Sender: GLAXOSMITHKLINE
  Company Number: US2024067186

PATIENT
  Age: 48 Year
  Sex: Male

DRUGS (1)
  1. NUCALA [Suspect]
     Active Substance: MEPOLIZUMAB
     Indication: Product used for unknown indication
     Dosage: UNK, Q4W
     Dates: end: 20250528

REACTIONS (2)
  - Hip arthroplasty [Unknown]
  - Angioedema [Unknown]

NARRATIVE: CASE EVENT DATE: 20240522
